FAERS Safety Report 7716043-6 (Version None)
Quarter: 2011Q3

REPORT INFORMATION
  Report Type: 
  Country: None (occurrence: None)
  Receive Date: 20110829
  Receipt Date: 20110812
  Transmission Date: 20111222
  Serious: Yes (Hospitalization)
  Sender: FDA-Public Use
  Company Number: US-GLAXOSMITHKLINE-A0875956A

PATIENT
  Age: 60 Year
  Sex: Female
  Weight: 93.2 kg

DRUGS (8)
  1. HYDROCHLOROTHIAZIDE [Concomitant]
  2. TRICOR [Concomitant]
  3. METFORMIN HYDROCHLORIDE [Concomitant]
  4. AVANDIA [Suspect]
     Indication: DIABETES MELLITUS
     Dosage: 4MG PER DAY
     Route: 048
     Dates: start: 19990501, end: 20070602
  5. ZETIA [Concomitant]
  6. TOPROL-XL [Concomitant]
  7. ENALAPRIL MALEATE [Concomitant]
  8. GLIPIZIDE [Concomitant]

REACTIONS (5)
  - MYOCARDIAL INFARCTION [None]
  - PNEUMONIA [None]
  - WEIGHT INCREASED [None]
  - CORONARY ARTERY DISEASE [None]
  - CORONARY ARTERY STENOSIS [None]
